FAERS Safety Report 14151574 (Version 1)
Quarter: 2017Q4

REPORT INFORMATION
  Report Type: Spontaneous
  Country: US (occurrence: None)
  Receive Date: 20171101
  Receipt Date: 20171101
  Transmission Date: 20180321
  Serious: Yes (Hospitalization)
  Sender: FDA-Public Use
  Company Number: None

PATIENT
  Age: 21 Year
  Sex: Male
  Weight: 93.3 kg

DRUGS (6)
  1. THC [Concomitant]
     Active Substance: DRONABINOL
  2. TRISENOX [Suspect]
     Active Substance: ARSENIC TRIOXIDE
     Dates: end: 20170908
  3. LIDOCAINE-PRILOCAINE [Concomitant]
     Active Substance: LIDOCAINE\PRILOCAINE
  4. ATIVAN [Concomitant]
     Active Substance: LORAZEPAM
  5. METHOTREXATE. [Suspect]
     Active Substance: METHOTREXATE
     Dates: end: 20170925
  6. TRETINOIN (ALL-TRANS RETINOIC ACID, ATRA) [Suspect]
     Active Substance: TRETINOIN
     Dates: end: 20170925

REACTIONS (9)
  - Confusional state [None]
  - Speech disorder [None]
  - Hypercapnia [None]
  - Mental status changes [None]
  - Thinking abnormal [None]
  - Unresponsive to stimuli [None]
  - Hyperventilation [None]
  - Agitation [None]
  - Disturbance in attention [None]

NARRATIVE: CASE EVENT DATE: 20171015
